FAERS Safety Report 9068755 (Version 1)
Quarter: 2013Q3

REPORT INFORMATION
  Report Type: Spontaneous
  Country: US (occurrence: None)
  Receive Date: 20130212
  Receipt Date: 20130212
  Transmission Date: 20140515
  Serious: Yes (Hospitalization)
  Sender: FDA-Public Use
  Company Number: None

PATIENT
  Age: 54 Year
  Sex: Male
  Weight: 87.6 kg

DRUGS (1)
  1. BIBF 1120 [Suspect]
     Indication: GLIOBLASTOMA MULTIFORME
     Dates: start: 20121016, end: 20121113

REACTIONS (9)
  - Thrombosis in device [None]
  - Asthenia [None]
  - Abasia [None]
  - Pneumonia [None]
  - Haemorrhage intracranial [None]
  - Haematoma [None]
  - Disseminated intravascular coagulation [None]
  - Hypokalaemia [None]
  - Thrombocytopenia [None]
